FAERS Safety Report 14216039 (Version 5)
Quarter: 2018Q1

REPORT INFORMATION
  Report Type: Spontaneous
  Country: US (occurrence: US)
  Receive Date: 20171122
  Receipt Date: 20180207
  Transmission Date: 20180508
  Serious: No
  Sender: FDA-Public Use
  Company Number: US-ASTRAZENECA-2017SF07368

PATIENT
  Age: 80 Year
  Sex: Male

DRUGS (2)
  1. NEXIUM 24HR [Suspect]
     Active Substance: ESOMEPRAZOLE MAGNESIUM
     Indication: GASTROOESOPHAGEAL REFLUX DISEASE
     Route: 048
  2. BAYER ASPIRIN [Concomitant]
     Active Substance: ASPIRIN
     Dosage: 500 MILLIGRAMS, DAILY (6 ASPIRIN PER DAY)

REACTIONS (11)
  - Product taste abnormal [Unknown]
  - Product odour abnormal [Not Recovered/Not Resolved]
  - Constipation [Not Recovered/Not Resolved]
  - Product size issue [Not Recovered/Not Resolved]
  - Poor quality drug administered [Unknown]
  - Intentional product use issue [Not Recovered/Not Resolved]
  - Blood pressure increased [Not Recovered/Not Resolved]
  - Suspected product tampering [Unknown]
  - Dysgeusia [Unknown]
  - Dyspepsia [Unknown]
  - Product contamination [Unknown]
